FAERS Safety Report 5423725-8 (Version None)
Quarter: 2007Q3

REPORT INFORMATION
  Report Type: 
  Country: None (occurrence: None)
  Receive Date: 20070727
  Receipt Date: 20060119
  Transmission Date: 20080115
  Serious: Yes (Hospitalization)
  Sender: FDA-Public Use
  Company Number: THYM-10858

PATIENT
  Age: 47 Year
  Sex: Male
  Weight: 104.4 kg

DRUGS (8)
  1. THYMOGLOBULIN [Suspect]
     Indication: NON-HODGKIN'S LYMPHOMA
     Dosage: 1.5 MG/KG QOD IV
     Route: 042
     Dates: start: 20050914, end: 20050920
  2. ACYCLOVIR [Concomitant]
  3. FLAGYL [Concomitant]
  4. VANCOMYCIN [Concomitant]
  5. CASPOFUNGIN [Concomitant]
  6. GRANULOCYTE MACROPHAGE COLONY-STIMULATING FACTOR [Concomitant]
  7. LEVAQUIN [Concomitant]
  8. AZTREONAM [Concomitant]

REACTIONS (2)
  - ENCEPHALITIS HERPES [None]
  - HUMAN HERPESVIRUS 6 INFECTION [None]
